FAERS Safety Report 9332342 (Version 1)
Quarter: 2013Q2

REPORT INFORMATION
  Report Type: Report from Study
  Country: ZA (occurrence: ZA)
  Receive Date: 20130606
  Receipt Date: 20130606
  Transmission Date: 20140414
  Serious: Yes (Death, Hospitalization)
  Sender: FDA-Public Use
  Company Number: ZA-ROCHE-1198786

PATIENT
  Age: 49 Year
  Sex: Female

DRUGS (6)
  1. RECORMON [Suspect]
     Indication: PRODUCT USED FOR UNKNOWN INDICATION
     Route: 058
     Dates: start: 20080522
  2. RECORMON [Suspect]
     Route: 058
     Dates: start: 201003
  3. RECORMON [Suspect]
     Route: 058
     Dates: start: 201207
  4. MIRCERA [Suspect]
     Indication: PRODUCT USED FOR UNKNOWN INDICATION
     Route: 065
     Dates: start: 201006
  5. MIRCERA [Suspect]
     Route: 065
     Dates: start: 201102
  6. MIRCERA [Suspect]
     Route: 065
     Dates: start: 201006

REACTIONS (2)
  - Death [Fatal]
  - Post procedural haemorrhage [Unknown]
